FAERS Safety Report 10977665 (Version 1)
Quarter: 2015Q1

REPORT INFORMATION
  Report Type: Spontaneous
  Country: KR (occurrence: None)
  Receive Date: 20150330
  Receipt Date: 20150330
  Transmission Date: 20150721
  Serious: Yes (Hospitalization)
  Sender: FDA-Public Use
  Company Number: FK201501429

PATIENT
  Age: 70 Year
  Sex: Male

DRUGS (4)
  1. MEPIVACAINE [Suspect]
     Active Substance: MEPIVACAINE\MEPIVACAINE HYDROCHLORIDE
     Indication: EPIDURAL ANAESTHESIA
     Dosage: 1 IN 1 D
     Route: 042
  2. TRIAMCINOLONE [Suspect]
     Active Substance: TRIAMCINOLONE
     Indication: EPIDURAL ANAESTHESIA
     Dosage: 1 IN 1 D
  3. IOHEXOL [Suspect]
     Active Substance: IOHEXOL
     Indication: EPIDURAL ANAESTHESIA
     Dosage: 1 IN 1 D
  4. SODUM CHLORIDE [Suspect]
     Active Substance: SODIUM CHLORIDE
     Indication: MEDICATION DILUTION
     Dosage: 1 IN 1 D
     Route: 042

REACTIONS (2)
  - Hypoaesthesia [None]
  - Muscular weakness [None]
